FAERS Safety Report 6426503-6 (Version None)
Quarter: 2009Q4

REPORT INFORMATION
  Report Type: 
  Country: None (occurrence: None)
  Receive Date: 20091030
  Receipt Date: 20091022
  Transmission Date: 20100525
  Serious: Yes (Hospitalization)
  Sender: FDA-Public Use
  Company Number: 2009AL006768

PATIENT
  Age: 2 Year
  Sex: Female
  Weight: 11.3 kg

DRUGS (2)
  1. AMLODIPINE BESYLATE TABLETS        (ATLLC) [Suspect]
     Indication: HYPERTENSION
     Dates: start: 20060522, end: 20061005
  2. ENDOXAN [Concomitant]

REACTIONS (12)
  - BLOOD CREATININE INCREASED [None]
  - BLOOD UREA INCREASED [None]
  - COMPLICATION OF DEVICE INSERTION [None]
  - COMPUTERISED TOMOGRAM ABNORMAL [None]
  - DRUG EFFECT DECREASED [None]
  - DRUG INEFFECTIVE [None]
  - HAEMODIALYSIS [None]
  - IMPLANT SITE EFFUSION [None]
  - MITRAL VALVE INCOMPETENCE [None]
  - PERICARDIAL EFFUSION [None]
  - PERITONEAL EFFLUENT LEUKOCYTE COUNT INCREASED [None]
  - PERITONEAL FLUID ANALYSIS ABNORMAL [None]
